FAERS Safety Report 23179231 (Version 1)
Quarter: 2023Q4

REPORT INFORMATION
  Report Type: Spontaneous
  Country: US (occurrence: US)
  Receive Date: 20231113
  Receipt Date: 20231113
  Transmission Date: 20240110
  Serious: Yes (Other)
  Sender: FDA-Public Use
  Company Number: US-ABBVIE-5484984

PATIENT
  Sex: Female

DRUGS (1)
  1. REFRESH OPTIVE MEGA-3 [Suspect]
     Active Substance: CARBOXYMETHYLCELLULOSE SODIUM\GLYCERIN\POLYSORBATE 80
     Indication: Dry eye
     Route: 047

REACTIONS (3)
  - Cataract [Unknown]
  - Dry eye [Unknown]
  - Glaucoma [Unknown]
